FAERS Safety Report 9640415 (Version 1)
Quarter: 2013Q4

REPORT INFORMATION
  Report Type: Spontaneous
  Country: US (occurrence: None)
  Receive Date: 20131021
  Receipt Date: 20131021
  Transmission Date: 20140711
  Serious: Yes (Other)
  Sender: FDA-Public Use
  Company Number: AUR-APL-2013-08700

PATIENT
  Age: 67 Year
  Sex: Female
  Weight: 144 kg

DRUGS (4)
  1. METFORMIN (METFORMIN) [Suspect]
     Indication: PRODUCT USED FOR UNKNOWN INDICATION
     Dosage: ORAL
     Route: 048
  2. ACCUPRIL (QUINAPRIL HYDROCHLORIDE) [Suspect]
     Indication: HYPERTENSION
     Dosage: 80 MG (80 MG, 1 IN 1 D), ORAL
  3. LIPITOR (ATORVASTATIN CALCIUM) [Concomitant]
  4. TRIAMTERENE AND HYDROCHLOROTHIAZID ^HARRIS^ (DYAZIDE) [Concomitant]

REACTIONS (7)
  - Drug ineffective [None]
  - Breast mass [None]
  - Stress [None]
  - Hyperphagia [None]
  - Breast cancer [None]
  - Blood pressure fluctuation [None]
  - Glycosylated haemoglobin increased [None]
